FAERS Safety Report 9775731 (Version 1)
Quarter: 2013Q4

REPORT INFORMATION
  Report Type: Spontaneous
  Country: US (occurrence: US)
  Receive Date: 20131220
  Receipt Date: 20131220
  Transmission Date: 20140711
  Serious: Yes (Hospitalization)
  Sender: FDA-Public Use
  Company Number: US-BRISTOL-MYERS SQUIBB COMPANY-19908144

PATIENT
  Sex: Male

DRUGS (3)
  1. COUMADIN [Suspect]
  2. HEPARIN [Suspect]
     Route: 041
  3. RIFAMPIN [Concomitant]

REACTIONS (2)
  - Endocarditis [Unknown]
  - International normalised ratio abnormal [Unknown]
